FAERS Safety Report 4954917-X (Version None)
Quarter: 2006Q1

REPORT INFORMATION
  Report Type: 
  Country: None (occurrence: None)
  Receive Date: 20060322
  Receipt Date: 20060303
  Transmission Date: 20060701
  Serious: Yes (Other)
  Sender: FDA-Public Use
  Company Number: FR_050706786

PATIENT
  Age: 92 Year
  Sex: Female
  Weight: 60 kg

DRUGS (3)
  1. EVISTA [Suspect]
     Indication: OSTEOPOROSIS
     Dosage: 60 MG, DAILY (1/D), ORAL
     Route: 048
     Dates: start: 20000701
  2. OROCAL D (3) /MON/ (CALCIUM CARBONATE, COLECALCIFEROL) TABLET [Concomitant]
  3. ISKEDYL (DIHYDROERGOCRISTINE MESILATE, RAUBASINE) [Concomitant]

REACTIONS (1)
  - BONE SARCOMA [None]
